FAERS Safety Report 17017769 (Version 3)
Quarter: 2020Q4

REPORT INFORMATION
  Report Type: Spontaneous
  Country: US (occurrence: US)
  Receive Date: 20191111
  Receipt Date: 20201112
  Transmission Date: 20210113
  Serious: No
  Sender: FDA-Public Use
  Company Number: US-PFIZER INC-2019482382

PATIENT
  Age: 70 Year
  Sex: Female
  Weight: 128.8 kg

DRUGS (3)
  1. NALBUPHINE HYDROCHLORIDE. [Suspect]
     Active Substance: NALBUPHINE HYDROCHLORIDE
     Indication: MUSCLE SPASTICITY
     Dosage: UNK, 3X/DAY, [0.7 CC INJECTION, EVERY 8 HOURS, ROTATING INJECTION SITES]
     Dates: start: 20000323
  2. NALBUPHINE HYDROCHLORIDE. [Suspect]
     Active Substance: NALBUPHINE HYDROCHLORIDE
     Indication: CEREBRAL PALSY
     Dosage: UNK, [20MG/CC PER 10CC VIAL, 25 VIALS BOX]
     Dates: start: 2000
  3. NALBUPHINE HYDROCHLORIDE. [Suspect]
     Active Substance: NALBUPHINE HYDROCHLORIDE
     Indication: PAIN
     Dosage: UNK, [1.5ML EVERY 4 HOURS]

REACTIONS (9)
  - Retching [Not Recovered/Not Resolved]
  - Feeling abnormal [Unknown]
  - Withdrawal syndrome [Not Recovered/Not Resolved]
  - Cough [Not Recovered/Not Resolved]
  - Vomiting [Not Recovered/Not Resolved]
  - Weight decreased [Unknown]
  - Drug ineffective [Not Recovered/Not Resolved]
  - Hiccups [Not Recovered/Not Resolved]
  - Intentional product use issue [Unknown]

NARRATIVE: CASE EVENT DATE: 201906
